FAERS Safety Report 7995987-4 (Version None)
Quarter: 2011Q4

REPORT INFORMATION
  Report Type: 
  Country: None (occurrence: None)
  Receive Date: 20111220
  Receipt Date: 20111205
  Transmission Date: 20120403
  Serious: Yes (Death)
  Sender: FDA-Public Use
  Company Number: PHHY2011US109800

PATIENT
  Age: 58 Year
  Sex: Female

DRUGS (3)
  1. CLOZAPINE [Suspect]
  2. ACETAMINOPHEN [Suspect]
     Route: 048
  3. VENLAFAXINE [Suspect]

REACTIONS (1)
  - DEATH [None]
